FAERS Safety Report 20691800 (Version 1)
Quarter: 2022Q2

REPORT INFORMATION
  Report Type: Spontaneous
  Country: US (occurrence: None)
  Receive Date: 20220407
  Receipt Date: 20220407
  Transmission Date: 20220721
  Serious: No
  Sender: FDA-Public Use
  Company Number: None

PATIENT
  Age: 74 Year
  Sex: Female
  Weight: 63.96 kg

DRUGS (2)
  1. COSENTYX [Suspect]
     Active Substance: SECUKINUMAB
     Indication: Ankylosing spondylitis
     Dosage: OTHER FREQUENCY : DAY 28 THENQ 4 WKS;?
     Route: 058
     Dates: start: 202203
  2. COSENTYX [Suspect]
     Active Substance: SECUKINUMAB
     Indication: Spinal disorder

REACTIONS (6)
  - Fungal infection [None]
  - Dry mouth [None]
  - Gingival disorder [None]
  - Induration [None]
  - Eye haemorrhage [None]
  - Tongue neoplasm malignant stage unspecified [None]
